FAERS Safety Report 5052131-3 (Version None)
Quarter: 2006Q3

REPORT INFORMATION
  Report Type: 
  Country: None (occurrence: None)
  Receive Date: 20060712
  Receipt Date: 20060712
  Transmission Date: 20061208
  Serious: No
  Sender: FDA-Public Use
  Company Number: None

PATIENT
  Age: 40 Year
  Sex: Female

DRUGS (1)
  1. RISPERIDONE [Suspect]
     Indication: POST-TRAUMATIC STRESS DISORDER
     Dosage: 1 MG BID
     Dates: start: 20060619, end: 20060626

REACTIONS (1)
  - HYPERPROLACTINAEMIA [None]
